FAERS Safety Report 17116129 (Version 1)
Quarter: 2019Q4

REPORT INFORMATION
  Report Type: Spontaneous
  Country: SE (occurrence: SE)
  Receive Date: 20191205
  Receipt Date: 20191205
  Transmission Date: 20200122
  Serious: Yes (Hospitalization)
  Sender: FDA-Public Use
  Company Number: SE-MYLANLABS-2019M1119020

PATIENT
  Age: 85 Year
  Sex: Female

DRUGS (13)
  1. FURIX [Concomitant]
     Dosage: 20 MILLIGRAM, PRN
  2. ATORVASTATIN [Concomitant]
     Active Substance: ATORVASTATIN
     Dosage: 80 MILLIGRAM, QD
  3. MOVICOL [Concomitant]
     Active Substance: POLYETHYLENE GLYCOL 3350\POTASSIUM CHLORIDE\SODIUM BICARBONATE\SODIUM CHLORIDE
     Dosage: UNK UNK, QD,1 X 1, DOSE 1
  4. ZOPICLONE [Concomitant]
     Active Substance: ZOPICLONE
     Dosage: 1 TILL NATTEN
  5. PARACETAMOL [Concomitant]
     Active Substance: ACETAMINOPHEN
     Dosage: 500 MILLIGRAM, PRN
  6. METOPROLOL. [Suspect]
     Active Substance: METOPROLOL
     Indication: PRODUCT USED FOR UNKNOWN INDICATION
     Dosage: 50 MILLIGRAM, QD
     Dates: end: 20190511
  7. CANODERM [Concomitant]
     Active Substance: UREA
     Dosage: UNK
  8. ACETYLCYSTEINE. [Concomitant]
     Active Substance: ACETYLCYSTEINE
     Dosage: 200 MILLIGRAM, PRN
  9. ACETYLSALICYLIC ACID [Concomitant]
     Active Substance: ASPIRIN
     Dosage: 75 MILLIGRAM, QD
  10. RAMIPRIL. [Concomitant]
     Active Substance: RAMIPRIL
     Dosage: 5 MILLIGRAM, QD
  11. CITALOPRAM [Concomitant]
     Active Substance: CITALOPRAM HYDROBROMIDE
     Dosage: 10 MILLIGRAM, QD
  12. OESTRING [Concomitant]
     Active Substance: ESTRADIOL
     Dosage: UNK UNK, Q3MONTHS,DOSE 1, VAGINALINL?GG
  13. OXASCAND [Concomitant]
     Active Substance: OXAZEPAM
     Dosage: 10 MG VID BEHOV, MAX 3/DYGN

REACTIONS (1)
  - Sinus node dysfunction [Recovered/Resolved]

NARRATIVE: CASE EVENT DATE: 20190510
